FAERS Safety Report 15429039 (Version 1)
Quarter: 2018Q3

REPORT INFORMATION
  Report Type: Spontaneous
  Country: US (occurrence: US)
  Receive Date: 20180926
  Receipt Date: 20180926
  Transmission Date: 20181010
  Serious: No
  Sender: FDA-Public Use
  Company Number: US-PFIZER INC-2017400044

PATIENT
  Age: 33 Year
  Sex: Male

DRUGS (1)
  1. SOMAVERT [Suspect]
     Active Substance: PEGVISOMANT
     Dosage: 30 MG, DAILY
     Dates: start: 200806

REACTIONS (7)
  - Blood glucose increased [Unknown]
  - Insulin-like growth factor increased [Unknown]
  - Low density lipoprotein increased [Unknown]
  - Red blood cell count decreased [Unknown]
  - Blood prolactin increased [Unknown]
  - High density lipoprotein decreased [Unknown]
  - Blood growth hormone increased [Unknown]

NARRATIVE: CASE EVENT DATE: 20100506
